FAERS Safety Report 23732909 (Version 1)
Quarter: 2024Q2

REPORT INFORMATION
  Report Type: Spontaneous
  Country: SG (occurrence: None)
  Receive Date: 20240411
  Receipt Date: 20240411
  Transmission Date: 20240716
  Serious: Yes (Other)
  Sender: FDA-Public Use
  Company Number: 2024A080607

PATIENT
  Sex: Female

DRUGS (1)
  1. IMJUDO [Suspect]
     Active Substance: TREMELIMUMAB\TREMELIMUMAB-ACTL
     Dosage: UNKNOWN
     Route: 042
     Dates: start: 202402

REACTIONS (2)
  - Disease progression [Recovered/Resolved]
  - Autoimmune hepatitis [Recovered/Resolved]
